FAERS Safety Report 10876944 (Version 2)
Quarter: 2015Q1

REPORT INFORMATION
  Report Type: Spontaneous
  Country: US (occurrence: US)
  Receive Date: 20150302
  Receipt Date: 20150302
  Transmission Date: 20150721
  Serious: Yes (Death, Hospitalization)
  Sender: FDA-Public Use
  Company Number: US-JNJFOC-20150219187

PATIENT
  Age: 64 Year
  Sex: Female
  Weight: 46.6 kg

DRUGS (6)
  1. HEPARIN [Suspect]
     Active Substance: HEPARIN SODIUM
     Indication: ATRIAL FIBRILLATION
     Route: 065
  2. HYDROCORTISONE. [Suspect]
     Active Substance: HYDROCORTISONE
     Indication: ATRIAL FIBRILLATION
     Route: 065
  3. PROPRANOLOL [Suspect]
     Active Substance: PROPRANOLOL\PROPRANOLOL HYDROCHLORIDE
     Indication: THYROTOXIC CRISIS
     Route: 065
  4. HEPARIN [Suspect]
     Active Substance: HEPARIN SODIUM
     Indication: THYROTOXIC CRISIS
     Route: 065
  5. HYDROCORTISONE. [Suspect]
     Active Substance: HYDROCORTISONE
     Indication: THYROTOXIC CRISIS
     Route: 065
  6. PROPRANOLOL [Suspect]
     Active Substance: PROPRANOLOL\PROPRANOLOL HYDROCHLORIDE
     Indication: ATRIAL FIBRILLATION
     Route: 065

REACTIONS (6)
  - Bradycardia [Unknown]
  - Disseminated intravascular coagulation [Fatal]
  - Hypotension [Unknown]
  - Multi-organ disorder [Fatal]
  - Drug ineffective [Fatal]
  - Pulseless electrical activity [Fatal]
